FAERS Safety Report 6064633-1 (Version None)
Quarter: 2009Q1

REPORT INFORMATION
  Report Type: 
  Country: None (occurrence: None)
  Receive Date: 20090204
  Receipt Date: 20080118
  Transmission Date: 20090719
  Serious: Yes (Hospitalization)
  Sender: FDA-Public Use
  Company Number: A0704132A

PATIENT
  Age: 41 Year
  Sex: Male

DRUGS (7)
  1. ARIXTRA [Suspect]
     Dosage: 2.5 PER DAY
     Route: 058
     Dates: start: 20080116
  2. DILAUDID [Concomitant]
  3. ZOFRAN [Concomitant]
  4. ATIVAN [Concomitant]
  5. DEXAMETHASONE [Concomitant]
  6. TPN [Concomitant]
  7. INSULIN [Concomitant]

REACTIONS (2)
  - INJECTION SITE PAIN [None]
  - PRODUCT QUALITY ISSUE [None]
